FAERS Safety Report 17129462 (Version 1)
Quarter: 2019Q4

REPORT INFORMATION
  Report Type: Spontaneous
  Country: FR (occurrence: FR)
  Receive Date: 20191209
  Receipt Date: 20191209
  Transmission Date: 20200122
  Serious: Yes (Death)
  Sender: FDA-Public Use
  Company Number: FR-009507513-1912FRA001414

PATIENT
  Age: 50 Year
  Sex: Male
  Weight: 68 kg

DRUGS (1)
  1. KEYTRUDA [Suspect]
     Active Substance: PEMBROLIZUMAB
     Indication: BLADDER CANCER STAGE IV
     Dosage: 200 MILLIGRAM
     Route: 041
     Dates: start: 20190902, end: 20191021

REACTIONS (3)
  - Autoimmune haemolytic anaemia [Fatal]
  - Pyrexia [Fatal]
  - Anaemia [Fatal]

NARRATIVE: CASE EVENT DATE: 201910
